FAERS Safety Report 9776246 (Version 2)
Quarter: 2013Q4

REPORT INFORMATION
  Report Type: Spontaneous
  Country: FR (occurrence: FR)
  Receive Date: 20131220
  Receipt Date: 20131227
  Transmission Date: 20140711
  Serious: Yes (Death, Life-Threatening)
  Sender: FDA-Public Use
  Company Number: FR-BRISTOL-MYERS SQUIBB COMPANY-19910124

PATIENT
  Age: 88 Year
  Sex: Male

DRUGS (8)
  1. COUMADIN TABS [Suspect]
     Route: 048
     Dates: start: 20131020
  2. CORDARONE [Suspect]
     Dates: start: 201211, end: 20131024
  3. CARDENSIEL [Suspect]
     Route: 048
     Dates: end: 20131024
  4. TAHOR [Suspect]
     Route: 048
     Dates: start: 201211, end: 20131024
  5. AMLOR [Suspect]
     Route: 048
     Dates: end: 20131024
  6. PARIET [Suspect]
     Route: 048
     Dates: end: 20131024
  7. AERIUS [Suspect]
     Route: 048
     Dates: end: 20131020
  8. AVODART [Concomitant]
     Route: 048
     Dates: end: 20131020

REACTIONS (1)
  - Interstitial lung disease [Fatal]
